FAERS Safety Report 23063014 (Version 1)
Quarter: 2023Q4

REPORT INFORMATION
  Report Type: Spontaneous
  Country: US (occurrence: None)
  Receive Date: 20231012
  Receipt Date: 20231012
  Transmission Date: 20240110
  Serious: Yes (Death)
  Sender: FDA-Public Use
  Company Number: None

PATIENT
  Age: 77 Year
  Sex: Male

DRUGS (18)
  1. MYCOPHENOLIC ACID [Suspect]
     Active Substance: MYCOPHENOLIC ACID
     Indication: Renal transplant
     Dosage: FREQUENCY : TWICE A DAY;?
     Route: 048
     Dates: start: 20220217, end: 202309
  2. WARFARIN SODIUM [Concomitant]
     Active Substance: WARFARIN SODIUM
  3. LORATADINE [Concomitant]
     Active Substance: LORATADINE
  4. METOPROLOL TARTRATE [Concomitant]
     Active Substance: METOPROLOL TARTRATE
  5. VITAMINS [Concomitant]
     Active Substance: VITAMINS
  6. MYCOPHENOLIC ACID [Concomitant]
     Active Substance: MYCOPHENOLIC ACID
  7. NIFEDIPINE [Concomitant]
     Active Substance: NIFEDIPINE
  8. NULOJIX [Concomitant]
     Active Substance: BELATACEPT
  9. PREDNISONE [Concomitant]
     Active Substance: PREDNISONE
  10. SILDENAFIL [Concomitant]
     Active Substance: SILDENAFIL
  11. TRELEGY ELLIPTA [Concomitant]
     Active Substance: FLUTICASONE FUROATE\UMECLIDINIUM BROMIDE\VILANTEROL TRIFENATATE
  12. VITAMIN D [Concomitant]
     Active Substance: VITAMIN D NOS
  13. ASPIRIN EC LOW DOSE [Concomitant]
  14. ALBUTEROL HFA INH [Concomitant]
  15. ATORVASTATIN [Concomitant]
     Active Substance: ATORVASTATIN
  16. FAMOTIDINE [Concomitant]
     Active Substance: FAMOTIDINE
  17. FLONASE NAS SPRAY [Concomitant]
  18. IPRATROPI/ALB INH SL [Concomitant]

REACTIONS (2)
  - Respiratory failure [None]
  - COVID-19 pneumonia [None]
